FAERS Safety Report 18781943 (Version 1)
Quarter: 2021Q1

REPORT INFORMATION
  Report Type: Spontaneous
  Country: US (occurrence: US)
  Receive Date: 20210125
  Receipt Date: 20210125
  Transmission Date: 20210419
  Serious: No
  Sender: FDA-Public Use
  Company Number: US-ALLERGAN-2013282US

PATIENT
  Age: 74 Year
  Sex: Male

DRUGS (12)
  1. METOPROLOL. [Concomitant]
     Active Substance: METOPROLOL
  2. LOSARTAN. [Concomitant]
     Active Substance: LOSARTAN
  3. LEVOTHYROXINE. [Concomitant]
     Active Substance: LEVOTHYROXINE
  4. RESTASIS [Suspect]
     Active Substance: CYCLOSPORINE
     Dosage: 1 SINGLE USE VIAL PER EYE BID ? 4 VIALS PER DAY
  5. RESTASIS [Suspect]
     Active Substance: CYCLOSPORINE
     Indication: DRY EYE
     Dosage: HALF SINGLE USE VIAL PER EYE BID ? 2 VIALS PER DAY
     Route: 047
     Dates: start: 20200316
  6. GLYBURIDE. [Concomitant]
     Active Substance: GLYBURIDE
  7. PROAIR HFA [Concomitant]
     Active Substance: ALBUTEROL SULFATE
     Indication: ASTHMA
  8. OMEPRAZOLE. [Concomitant]
     Active Substance: OMEPRAZOLE
  9. FUROSEMIDE. [Concomitant]
     Active Substance: FUROSEMIDE
  10. FINASTERIDE. [Concomitant]
     Active Substance: FINASTERIDE
  11. INSULIN [Concomitant]
     Active Substance: INSULIN NOS
  12. DOXAZOSIN [Concomitant]
     Active Substance: DOXAZOSIN MESYLATE

REACTIONS (5)
  - Eye irritation [Not Recovered/Not Resolved]
  - Intentional product use issue [Unknown]
  - Ocular hyperaemia [Not Recovered/Not Resolved]
  - Dry eye [Not Recovered/Not Resolved]
  - Eye pain [Not Recovered/Not Resolved]

NARRATIVE: CASE EVENT DATE: 20200316
